FAERS Safety Report 6667197-4 (Version None)
Quarter: 2010Q2

REPORT INFORMATION
  Report Type: 
  Country: None (occurrence: None)
  Receive Date: 20100401
  Receipt Date: 20100401
  Transmission Date: 20101027
  Serious: No
  Sender: FDA-Public Use
  Company Number: None

PATIENT
  Age: 52 Year
  Sex: Female

DRUGS (2)
  1. VELCADE [Suspect]
     Dosage: UNKNOWN
  2. REVLIMID [Suspect]

REACTIONS (2)
  - FATIGUE [None]
  - PAIN [None]
